FAERS Safety Report 11287606 (Version 7)
Quarter: 2016Q3

REPORT INFORMATION
  Report Type: Spontaneous
  Country: US (occurrence: US)
  Receive Date: 20150721
  Receipt Date: 20160913
  Transmission Date: 20161109
  Serious: No
  Sender: FDA-Public Use
  Company Number: US-PFIZER INC-2015238042

PATIENT
  Age: 77 Year
  Sex: Male
  Weight: 79.38 kg

DRUGS (3)
  1. SUTENT [Suspect]
     Active Substance: SUNITINIB MALATE
     Indication: RENAL CANCER STAGE IV
     Dosage: 50 MG, CYCLIC (FOR 4 WEEKS THEN OFF FOR 2 WEEKS)
     Dates: start: 20150430
  2. SUTENT [Suspect]
     Active Substance: SUNITINIB MALATE
     Dosage: 37.5 MG, 1X/DAY
     Route: 048
     Dates: start: 201506, end: 20160822
  3. SUTENT [Suspect]
     Active Substance: SUNITINIB MALATE
     Dosage: 37.5 MG, UNK
     Dates: start: 20150901

REACTIONS (13)
  - Fatigue [Recovered/Resolved]
  - Activities of daily living impaired [Recovered/Resolved]
  - Disease progression [Not Recovered/Not Resolved]
  - Hypokinesia [Not Recovered/Not Resolved]
  - Renal cancer stage IV [Not Recovered/Not Resolved]
  - Weight decreased [Unknown]
  - Bladder disorder [Recovered/Resolved]
  - Blood pressure increased [Recovering/Resolving]
  - Mucosal inflammation [Recovered/Resolved]
  - Oropharyngeal pain [Recovering/Resolving]
  - Movement disorder [Recovered/Resolved]
  - Gait disturbance [Not Recovered/Not Resolved]
  - Anxiety [Unknown]

NARRATIVE: CASE EVENT DATE: 20151119
